FAERS Safety Report 17988567 (Version 1)
Quarter: 2020Q3

REPORT INFORMATION
  Report Type: Spontaneous
  Country: US (occurrence: US)
  Receive Date: 20200707
  Receipt Date: 20200707
  Transmission Date: 20201103
  Serious: No
  Sender: FDA-Public Use
  Company Number: US-PFIZER INC-2020253998

PATIENT
  Sex: Female

DRUGS (1)
  1. DEPO?PROVERA [Suspect]
     Active Substance: MEDROXYPROGESTERONE ACETATE
     Dosage: UNK (DEPO?PROVERA 150 MG)

REACTIONS (4)
  - Memory impairment [Unknown]
  - Vaginal haemorrhage [Unknown]
  - Metrorrhagia [Unknown]
  - Drug ineffective [Unknown]
